FAERS Safety Report 9270464 (Version 2)
Quarter: 2013Q2

REPORT INFORMATION
  Report Type: Spontaneous
  Country: DE (occurrence: DE)
  Receive Date: 20130503
  Receipt Date: 20130509
  Transmission Date: 20140414
  Serious: Yes (Congenital Anomaly, Other)
  Sender: FDA-Public Use
  Company Number: DE-PFIZER INC-2013133884

PATIENT
  Sex: Male
  Weight: .61 kg

DRUGS (5)
  1. IBUPROFEN [Suspect]
     Indication: ANKYLOSING SPONDYLITIS
     Dosage: 1200 MG, 1X/DAY
     Route: 064
  2. IBUPROFEN [Suspect]
     Dosage: 300 MG, 1X/DAY
     Route: 064
     Dates: start: 20120301, end: 20120925
  3. DAIVOBET [Suspect]
     Indication: PSORIASIS
     Dosage: SMALL-AREA
     Route: 064
     Dates: start: 20120201
  4. FOLIO FORTE [Suspect]
     Indication: PROPHYLAXIS OF NEURAL TUBE DEFECT
     Dosage: 0.8-0.4 MG/DAY/ ALSO PRECONCEPTIONAL
     Route: 064
     Dates: start: 20120201
  5. KADEFUNGIN [Suspect]
     Indication: VULVOVAGINAL MYCOTIC INFECTION
     Dosage: 20 MG, DAILY
     Route: 064

REACTIONS (5)
  - Foetal exposure during pregnancy [Unknown]
  - Foetal growth restriction [Not Recovered/Not Resolved]
  - Ventricular septal defect [Not Recovered/Not Resolved]
  - Skeletal dysplasia [Not Recovered/Not Resolved]
  - Foetal hypokinesia [Not Recovered/Not Resolved]
